FAERS Safety Report 9242577 (Version 1)
Quarter: 2013Q2

REPORT INFORMATION
  Report Type: Spontaneous
  Country: US (occurrence: US)
  Receive Date: 20130419
  Receipt Date: 20130419
  Transmission Date: 20140414
  Serious: Yes (Hospitalization)
  Sender: FDA-Public Use
  Company Number: US-GLAXOSMITHKLINE-A0753985A

PATIENT
  Age: 72 Year
  Sex: Female
  Weight: 80.5 kg

DRUGS (16)
  1. AVANDIA [Suspect]
     Indication: DIABETES MELLITUS
     Dosage: 8MG PER DAY
     Route: 048
     Dates: start: 2000, end: 2005
  2. GLUCOTROL XL [Concomitant]
  3. PREDNISONE [Concomitant]
  4. CELEBREX [Concomitant]
  5. MAXZIDE [Concomitant]
  6. BEXTRA [Concomitant]
  7. ARTHROTEC [Concomitant]
  8. MICRO K [Concomitant]
  9. HEMOCYTE PLUS [Concomitant]
  10. PROTONIX [Concomitant]
  11. LORTAB [Concomitant]
  12. MOBIC [Concomitant]
  13. PYRIDIUM [Concomitant]
  14. METHOTREXATE [Concomitant]
  15. TEQUIN [Concomitant]
  16. ATIVAN [Concomitant]

REACTIONS (7)
  - Myocardial infarction [Not Recovered/Not Resolved]
  - Renal failure [Unknown]
  - Pulmonary hypertension [Unknown]
  - Myocardial ischaemia [Unknown]
  - Cardiac failure congestive [Unknown]
  - Arteriosclerosis [Unknown]
  - Coronary artery disease [Unknown]
